FAERS Safety Report 9961143 (Version 1)
Quarter: 2014Q1

REPORT INFORMATION
  Report Type: Spontaneous
  Country: NL (occurrence: NL)
  Receive Date: 20140305
  Receipt Date: 20140305
  Transmission Date: 20141002
  Serious: Yes (Life-Threatening, Hospitalization, Other)
  Sender: FDA-Public Use
  Company Number: NL-009507513-1402NLD012791

PATIENT
  Age: 50 Year
  Sex: Male
  Weight: 73 kg

DRUGS (5)
  1. BOCEPREVIR [Suspect]
     Indication: ACUTE HEPATITIS C
     Dosage: 800 MG, TID
     Route: 048
     Dates: start: 20131129
  2. PEGINTRON [Interacting]
     Indication: ACUTE HEPATITIS C
     Dosage: 100 MICROGRAM, QW, INJPDR PEN 100MCG SOLV 0.5ML
     Route: 058
     Dates: start: 20131129
  3. RIBAVIRIN [Interacting]
     Indication: ACUTE HEPATITIS C
     Dosage: 1 DD, 600 MG, UNK
     Route: 048
     Dates: start: 20131129
  4. RIBAVIRIN [Interacting]
     Dosage: 1 DD, 400 MG, UNK
     Route: 048
     Dates: start: 20131129
  5. EVIPLERA [Concomitant]
     Dosage: 1 DF, QD
     Dates: start: 20131129

REACTIONS (2)
  - Acute myocardial infarction [Recovered/Resolved]
  - Drug interaction [Unknown]
